FAERS Safety Report 18443064 (Version 2)
Quarter: 2020Q4

REPORT INFORMATION
  Report Type: Spontaneous
  Country: US (occurrence: US)
  Receive Date: 20201029
  Receipt Date: 20201112
  Transmission Date: 20210114
  Serious: Yes (Hospitalization)
  Sender: FDA-Public Use
  Company Number: US-TEVA-2020-US-1842127

PATIENT
  Age: 29 Year
  Sex: Male

DRUGS (1)
  1. NALTREXONE [Suspect]
     Active Substance: NALTREXONE
     Indication: PRODUCT USED FOR UNKNOWN INDICATION
     Route: 048

REACTIONS (6)
  - Alkalosis [Recovering/Resolving]
  - Lactic acidosis [Recovering/Resolving]
  - Wrong product administered [Unknown]
  - Venous oxygen saturation decreased [Recovering/Resolving]
  - Drug withdrawal syndrome [Recovering/Resolving]
  - Hypocapnia [Recovering/Resolving]
